FAERS Safety Report 9727431 (Version 6)
Quarter: 2014Q3

REPORT INFORMATION
  Report Type: Report from Study
  Country: US (occurrence: US)
  Receive Date: 20131203
  Receipt Date: 20140903
  Transmission Date: 20150326
  Serious: Yes (Death, Hospitalization, Other)
  Sender: FDA-Public Use
  Company Number: US-BAYER-2013-144979

PATIENT
  Age: 63 Year
  Sex: Male

DRUGS (4)
  1. XOFIGO [Suspect]
     Active Substance: RADIUM RA-223 DICHLORIDE
     Indication: METASTASES TO BONE
     Dosage: 50 KBQ PER KG BODY WEIGHT ONCE A MONTH
     Route: 042
     Dates: start: 20131018
  2. XOFIGO [Suspect]
     Active Substance: RADIUM RA-223 DICHLORIDE
     Indication: PROSTATE CANCER STAGE IV
     Dosage: 50 KBQ PER KG BODY WEIGHT ONCE A MONTH
     Route: 042
     Dates: start: 20130920
  3. XOFIGO [Suspect]
     Active Substance: RADIUM RA-223 DICHLORIDE
     Indication: PROSTATE CANCER STAGE IV
     Dosage: 50 KBQ/KG BODY WEIGHT
     Route: 042
     Dates: start: 20131126
  4. XOFIGO [Suspect]
     Active Substance: RADIUM RA-223 DICHLORIDE
     Indication: PROSTATE CANCER STAGE IV
     Dosage: 50 KBQ/KG BODY WEIGHT
     Route: 042
     Dates: start: 20140114, end: 20140114

REACTIONS (13)
  - Haematocrit decreased [Not Recovered/Not Resolved]
  - Prostate cancer metastatic [Fatal]
  - Anaemia [None]
  - Presyncope [None]
  - Nausea [None]
  - Urinary tract infection [Not Recovered/Not Resolved]
  - Neutrophil count decreased [Not Recovered/Not Resolved]
  - Sepsis [None]
  - Vomiting [None]
  - Bladder neck obstruction [Not Recovered/Not Resolved]
  - Metastases to central nervous system [None]
  - Asthenia [None]
  - Loss of consciousness [None]

NARRATIVE: CASE EVENT DATE: 20131104
